FAERS Safety Report 23138935 (Version 1)
Quarter: 2023Q4

REPORT INFORMATION
  Report Type: Spontaneous
  Country: JP (occurrence: JP)
  Receive Date: 20231102
  Receipt Date: 20231102
  Transmission Date: 20240110
  Serious: Yes (Hospitalization, Other)
  Sender: FDA-Public Use
  Company Number: JP-ORG100014127-2023001041

PATIENT
  Age: 52 Year
  Sex: Male

DRUGS (1)
  1. METYRAPONE [Suspect]
     Active Substance: METYRAPONE
     Indication: Cushing^s syndrome

REACTIONS (2)
  - Hypokalaemia [Unknown]
  - 11-deoxycorticosterone increased [Unknown]
